FAERS Safety Report 4619740-4 (Version None)
Quarter: 2005Q1

REPORT INFORMATION
  Report Type: 
  Country: None (occurrence: None)
  Receive Date: 20050325
  Receipt Date: 20050323
  Transmission Date: 20050727
  Serious: Yes (Hospitalization)
  Sender: FDA-Public Use
  Company Number: US-MERCK-0503USA04261

PATIENT
  Age: 81 Year
  Sex: Female

DRUGS (3)
  1. FOSAMAX [Suspect]
     Route: 048
  2. HYDRODIURIL [Concomitant]
     Route: 048
  3. ATENOLOL [Concomitant]
     Route: 065

REACTIONS (1)
  - ATRIAL FIBRILLATION [None]
